FAERS Safety Report 17088295 (Version 4)
Quarter: 2020Q3

REPORT INFORMATION
  Report Type: Report from Study
  Country: US (occurrence: US)
  Receive Date: 20191128
  Receipt Date: 20200709
  Transmission Date: 20201102
  Serious: No
  Sender: FDA-Public Use
  Company Number: NVSC2019US051871

PATIENT
  Age: 52 Year
  Sex: Male

DRUGS (1)
  1. GILENYA [Suspect]
     Active Substance: FINGOLIMOD HYDROCHLORIDE
     Indication: RELAPSING-REMITTING MULTIPLE SCLEROSIS
     Dosage: 0.5 MG, QOD
     Route: 048
     Dates: start: 20180624

REACTIONS (18)
  - Constipation [Unknown]
  - Energy increased [Unknown]
  - Muscular weakness [Unknown]
  - Fatigue [Unknown]
  - White blood cell count decreased [Unknown]
  - Muscle spasticity [Unknown]
  - Weight fluctuation [Unknown]
  - Depression [Unknown]
  - Dry eye [Unknown]
  - Pain in extremity [Unknown]
  - Joint swelling [Recovering/Resolving]
  - Dyskinesia [Unknown]
  - Weight decreased [Unknown]
  - Gastrointestinal inflammation [Unknown]
  - Bladder dysfunction [Unknown]
  - Cystitis [Unknown]
  - Temperature intolerance [Unknown]
  - Off label use [Not Recovered/Not Resolved]

NARRATIVE: CASE EVENT DATE: 20191010
